FAERS Safety Report 17832955 (Version 1)
Quarter: 2020Q2

REPORT INFORMATION
  Report Type: Spontaneous
  Country: TR (occurrence: TR)
  Receive Date: 20200528
  Receipt Date: 20200528
  Transmission Date: 20200714
  Serious: Yes (Hospitalization, Other)
  Sender: FDA-Public Use
  Company Number: TR-SA-2020SA129193

PATIENT
  Age: 61 Year
  Sex: Female

DRUGS (1)
  1. ENOXAPARIN SODIUM. [Suspect]
     Active Substance: ENOXAPARIN SODIUM
     Indication: DEEP VEIN THROMBOSIS
     Dosage: 60 MG, BID
     Route: 058

REACTIONS (8)
  - Muscle oedema [Unknown]
  - Tissue discolouration [Unknown]
  - Peripheral swelling [Recovered/Resolved]
  - Haematoma [Unknown]
  - Synovial rupture [Unknown]
  - Ecchymosis [Recovered/Resolved]
  - Haemorrhage [Unknown]
  - Tenderness [Unknown]
